FAERS Safety Report 5046271-2 (Version None)
Quarter: 2006Q3

REPORT INFORMATION
  Report Type: 
  Country: None (occurrence: None)
  Receive Date: 20060710
  Receipt Date: 20060509
  Transmission Date: 20061208
  Serious: Yes (Death)
  Sender: FDA-Public Use
  Company Number: PHBS2006JP06915

PATIENT
  Age: 62 Year
  Sex: Female
  Weight: 43 kg

DRUGS (3)
  1. ZOMETA [Suspect]
     Indication: METASTASES TO BONE
     Dosage: 4 MG, ONCE/SINGLE
     Route: 042
     Dates: start: 20060428, end: 20060428
  2. FLUOROURACIL [Concomitant]
     Indication: METASTASES TO LUNG
     Dosage: 500 MG, UNK
     Route: 042
     Dates: start: 20060105, end: 20060505
  3. CISPLATIN [Concomitant]
     Indication: METASTASES TO LUNG
     Dosage: 5 MG, UNK
     Route: 042
     Dates: start: 20060107, end: 20060505

REACTIONS (13)
  - ALANINE AMINOTRANSFERASE INCREASED [None]
  - ASPARTATE AMINOTRANSFERASE INCREASED [None]
  - BLOOD LACTATE DEHYDROGENASE INCREASED [None]
  - DISSEMINATED INTRAVASCULAR COAGULATION [None]
  - FATIGUE [None]
  - MULTI-ORGAN FAILURE [None]
  - PLATELET COUNT DECREASED [None]
  - PURPURA [None]
  - PYREXIA [None]
  - RENAL FAILURE [None]
  - RESPIRATORY DEPRESSION [None]
  - SWELLING [None]
  - WHITE BLOOD CELL COUNT DECREASED [None]
